FAERS Safety Report 5188190-7 (Version None)
Quarter: 2006Q4

REPORT INFORMATION
  Report Type: 
  Country: None (occurrence: None)
  Receive Date: 20061214
  Receipt Date: 20061208
  Transmission Date: 20070319
  Serious: Yes (Death, Life-Threatening, Hospitalization)
  Sender: FDA-Public Use
  Company Number: HQWYE558125OCT06

PATIENT
  Age: 68 Year
  Sex: Male

DRUGS (7)
  1. ANCARON (AMIODARONE, TABLET) [Suspect]
     Indication: ATRIAL FIBRILLATION
     Dosage: 100 MG 2X PER 1 DAY, ORAL
     Route: 048
     Dates: start: 20020401, end: 20061008
  2. BAYASPIRINA (ACETYLSALICYLIC ACID) [Concomitant]
  3. LASIX [Concomitant]
  4. DILTIAZEM HYDROCHLORIDE [Concomitant]
  5. WARFARIN SODIUM [Concomitant]
  6. FAMOTIDINE [Concomitant]
  7. GLYBURIDE [Concomitant]

REACTIONS (19)
  - ACTIVATED PARTIAL THROMBOPLASTIN TIME PROLONGED [None]
  - BLOOD BICARBONATE INCREASED [None]
  - BLOOD LACTATE DEHYDROGENASE INCREASED [None]
  - BLOOD PH DECREASED [None]
  - C-REACTIVE PROTEIN INCREASED [None]
  - CARDIAC FAILURE [None]
  - CELL MARKER INCREASED [None]
  - CONDITION AGGRAVATED [None]
  - DISSEMINATED INTRAVASCULAR COAGULATION [None]
  - FIBRIN D DIMER INCREASED [None]
  - FIBRIN DEGRADATION PRODUCTS INCREASED [None]
  - HYPOTHYROIDISM [None]
  - INTERNATIONAL NORMALISED RATIO INCREASED [None]
  - INTERSTITIAL LUNG DISEASE [None]
  - PCO2 DECREASED [None]
  - PO2 INCREASED [None]
  - PROTHROMBIN TIME PROLONGED [None]
  - SEPSIS [None]
  - SEPTIC SHOCK [None]
